FAERS Safety Report 13210330 (Version 1)
Quarter: 2017Q1

REPORT INFORMATION
  Report Type: Spontaneous
  Country: US (occurrence: US)
  Receive Date: 20170209
  Receipt Date: 20170209
  Transmission Date: 20170428
  Serious: No
  Sender: FDA-Public Use
  Company Number: None

PATIENT
  Age: 77 Year
  Sex: Female

DRUGS (1)
  1. FORTEO [Suspect]
     Active Substance: TERIPARATIDE
     Indication: SENILE OSTEOPOROSIS

REACTIONS (6)
  - Pain [None]
  - Hair disorder [None]
  - Injection site reaction [None]
  - Weight increased [None]
  - Sleep disorder [None]
  - Skin disorder [None]

NARRATIVE: CASE EVENT DATE: 20170116
